FAERS Safety Report 5167219-6 (Version None)
Quarter: 2006Q4

REPORT INFORMATION
  Report Type: 
  Country: None (occurrence: None)
  Receive Date: 20061130
  Receipt Date: 20061117
  Transmission Date: 20070319
  Serious: Yes (Hospitalization, Other)
  Sender: FDA-Public Use
  Company Number: 2006135687

PATIENT
  Age: 84 Year
  Sex: Male
  Weight: 46 kg

DRUGS (8)
  1. CABERGOLINE [Suspect]
     Indication: PARKINSON'S DISEASE
     Dosage: 0.75 MG (3 IN 1 D), ORAL
     Route: 048
     Dates: start: 20030320, end: 20060921
  2. ASPIRIN [Concomitant]
  3. NEUQUINON (UBIDECARENONE) [Concomitant]
  4. BIOFERMIN R (STREPTOCOCCUS FAECALIS) [Concomitant]
  5. GASMOTIN (MOSAPRIDE CITRATE) [Concomitant]
  6. FERROMIA (FERROUS CITRATE) [Concomitant]
  7. MADOPAR (BENSERAZIDE HYDROCHLORIDE, LEVODOPA) [Concomitant]
  8. ARICEPT [Concomitant]

REACTIONS (3)
  - INTERSTITIAL LUNG DISEASE [None]
  - PLEURAL EFFUSION [None]
  - VOMITING [None]
